FAERS Safety Report 18646274 (Version 1)
Quarter: 2020Q4

REPORT INFORMATION
  Report Type: Spontaneous
  Country: IT (occurrence: IT)
  Receive Date: 20201222
  Receipt Date: 20201222
  Transmission Date: 20210114
  Serious: Yes (Other)
  Sender: FDA-Public Use
  Company Number: IT-TEVA-2020-IT-1861041

PATIENT
  Age: 69 Year
  Sex: Male

DRUGS (6)
  1. MORPHINE [Suspect]
     Active Substance: MORPHINE
     Indication: APHTHOUS ULCER
     Route: 065
  2. AMOXICILLIN AND CLAVULANIC ACID [Suspect]
     Active Substance: AMOXICILLIN\CLAVULANIC ACID
     Indication: APHTHOUS ULCER
     Route: 065
  3. OXYCODONE [Suspect]
     Active Substance: OXYCODONE
     Indication: APHTHOUS ULCER
     Route: 065
  4. ECONAZOLE. [Suspect]
     Active Substance: ECONAZOLE NITRATE
     Indication: CANDIDA INFECTION
     Route: 065
  5. ECONAZOLE. [Suspect]
     Active Substance: ECONAZOLE NITRATE
     Indication: APHTHOUS ULCER
  6. BLINATUMOMAB [Suspect]
     Active Substance: BLINATUMOMAB
     Indication: ACUTE LYMPHOCYTIC LEUKAEMIA
     Route: 065

REACTIONS (5)
  - Treatment failure [Unknown]
  - Candida infection [Recovering/Resolving]
  - Drug ineffective [Unknown]
  - Aphthous ulcer [Recovered/Resolved]
  - Dry mouth [Recovered/Resolved]
